FAERS Safety Report 12907451 (Version 7)
Quarter: 2018Q3

REPORT INFORMATION
  Report Type: Report from Study
  Country: CA (occurrence: CA)
  Receive Date: 20161103
  Receipt Date: 20180924
  Transmission Date: 20181010
  Serious: Yes (Hospitalization, Other)
  Sender: FDA-Public Use
  Company Number: PHHY2013CA143590

PATIENT
  Age: 90 Year
  Sex: Female

DRUGS (8)
  1. SANDOSTATIN LAR DEPOT [Suspect]
     Active Substance: OCTREOTIDE ACETATE
     Indication: ACROMEGALY
     Dosage: 20 MG, EVERY 4 WEEKS
     Route: 030
     Dates: start: 20121213
  2. SANDOSTATIN LAR DEPOT [Suspect]
     Active Substance: OCTREOTIDE ACETATE
     Dosage: 10 MG, TIW (EVERY 3 WEEKS)
     Route: 030
  3. MORPHINE [Suspect]
     Active Substance: MORPHINE
     Indication: PRODUCT USED FOR UNKNOWN INDICATION
     Route: 065
  4. CANDESARTAN. [Concomitant]
     Active Substance: CANDESARTAN
     Indication: PRODUCT USED FOR UNKNOWN INDICATION
     Dosage: UNK, QD (AM)
     Route: 065
  5. HCTZ [Concomitant]
     Active Substance: HYDROCHLOROTHIAZIDE
     Indication: PRODUCT USED FOR UNKNOWN INDICATION
     Dosage: UNK, QD (AM)
     Route: 065
  6. DUREZOL [Concomitant]
     Active Substance: DIFLUPREDNATE
     Indication: GLAUCOMA
     Dosage: 1 DF, UNK, FOR 1 MONTH (IN RIGHT EYE)
     Route: 057
     Dates: start: 2017
  7. SANDOSTATIN LAR DEPOT [Suspect]
     Active Substance: OCTREOTIDE ACETATE
     Dosage: 10 MG, QMO (ONCE A MONTH)
     Route: 030
  8. ZYMAR [Concomitant]
     Active Substance: GATIFLOXACIN
     Indication: GLAUCOMA
     Dosage: 1 DF, QID FOR 7 DAYS (IN RIGHT EYE)
     Route: 057
     Dates: start: 2017

REACTIONS (17)
  - Fall [Unknown]
  - Inappropriate schedule of drug administration [Unknown]
  - Pain [Recovering/Resolving]
  - Influenza [Recovering/Resolving]
  - Arthralgia [Unknown]
  - Lung infection [Unknown]
  - Blood pressure systolic increased [Unknown]
  - Hip fracture [Recovering/Resolving]
  - Depression [Unknown]
  - Heart rate irregular [Unknown]
  - Malaise [Unknown]
  - Hypotension [Unknown]
  - Dizziness [Unknown]
  - Cough [Recovered/Resolved]
  - Bradycardia [Unknown]
  - Blood pressure decreased [Unknown]
  - Diarrhoea [Unknown]

NARRATIVE: CASE EVENT DATE: 201510
